FAERS Safety Report 4274504-9 (Version None)
Quarter: 2004Q1

REPORT INFORMATION
  Report Type: 
  Country: None (occurrence: None)
  Receive Date: 20040120
  Receipt Date: 20040120
  Transmission Date: 20041129
  Serious: Yes (Life-Threatening)
  Sender: FDA-Public Use
  Company Number: None

PATIENT
  Sex: Female
  Weight: 49.8957 kg

DRUGS (1)
  1. PAXIL [Suspect]
     Indication: DEPRESSION
     Dosage: 40 MG ONCE A DAY ORAL
     Route: 048
     Dates: start: 19951001, end: 20000901

REACTIONS (11)
  - DRUG DEPENDENCE [None]
  - DRUG WITHDRAWAL SYNDROME [None]
  - EMOTIONAL DISORDER [None]
  - FATIGUE [None]
  - INSOMNIA [None]
  - MIGRAINE [None]
  - NAUSEA [None]
  - SUICIDAL IDEATION [None]
  - THINKING ABNORMAL [None]
  - TINNITUS [None]
  - URINARY INCONTINENCE [None]
